FAERS Safety Report 5978346-5 (Version None)
Quarter: 2008Q4

REPORT INFORMATION
  Report Type: 
  Country: None (occurrence: None)
  Receive Date: 20081204
  Receipt Date: 20081103
  Transmission Date: 20090506
  Serious: No
  Sender: FDA-Public Use
  Company Number: US-BAYER-200837813NA

PATIENT
  Sex: Female
  Weight: 82 kg

DRUGS (1)
  1. MIRENA [Suspect]
     Indication: CONTRACEPTION
     Route: 015
     Dates: end: 20081024

REACTIONS (1)
  - INTRA-UTERINE CONTRACEPTIVE DEVICE EXPELLED [None]
